FAERS Safety Report 23702733 (Version 2)
Quarter: 2024Q2

REPORT INFORMATION
  Report Type: Spontaneous
  Country: US (occurrence: US)
  Receive Date: 20240403
  Receipt Date: 20240404
  Transmission Date: 20240716
  Serious: No
  Sender: FDA-Public Use
  Company Number: US-JNJFOC-20240406319

PATIENT
  Sex: Female

DRUGS (2)
  1. STELARA [Suspect]
     Active Substance: USTEKINUMAB
     Indication: Product used for unknown indication
     Route: 058
  2. STELARA [Suspect]
     Active Substance: USTEKINUMAB
     Dosage: NUMBER OF UNITS INVOLVED IN THIS COMPLAINT- 2?EXPIRY DATE TEXT- JUL-2026
     Route: 058

REACTIONS (2)
  - Product storage error [Unknown]
  - Product dose omission issue [Unknown]
